FAERS Safety Report 10872094 (Version 1)
Quarter: 2015Q1

REPORT INFORMATION
  Report Type: Spontaneous
  Country: CH (occurrence: CH)
  Receive Date: 20150226
  Receipt Date: 20150226
  Transmission Date: 20150721
  Serious: Yes (Hospitalization, Other)
  Sender: FDA-Public Use
  Company Number: CH-ABBVIE-15P-151-1350965-00

PATIENT
  Sex: Male

DRUGS (2)
  1. LEVODOPA/CARBIDOPA [Suspect]
     Active Substance: CARBIDOPA\LEVODOPA
     Indication: PARKINSON^S DISEASE
     Dosage: MD: 9ML CD: 3.8ML/H ED: 1.5ML16H THERAPY
     Route: 050
     Dates: start: 201206
  2. LEVODOPA/CARBIDOPA [Suspect]
     Active Substance: CARBIDOPA\LEVODOPA
     Dosage: CONTINIOUS RATE. 3.6ML/H
     Route: 050

REACTIONS (6)
  - Pneumonia [Recovered/Resolved]
  - C-reactive protein increased [Unknown]
  - Abdominal pain [Unknown]
  - Renal failure [Recovering/Resolving]
  - Dehydration [Recovering/Resolving]
  - Constipation [Unknown]

NARRATIVE: CASE EVENT DATE: 2014
